FAERS Safety Report 7363218-4 (Version None)
Quarter: 2011Q1

REPORT INFORMATION
  Report Type: 
  Country: None (occurrence: None)
  Receive Date: 20110321
  Receipt Date: 20110315
  Transmission Date: 20110831
  Serious: Yes (Death, Other)
  Sender: FDA-Public Use
  Company Number: JP-ASTELLAS-2011JP001834

PATIENT
  Age: 49 Year
  Sex: Male

DRUGS (4)
  1. OSELTAMIVIR [Concomitant]
     Indication: INFLUENZA
     Dosage: UNK
     Route: 065
  2. PROGRAF [Suspect]
     Indication: ACUTE GRAFT VERSUS HOST DISEASE
     Dosage: UNK
     Route: 065
     Dates: start: 20090101
  3. PREDNISOLONE [Concomitant]
     Indication: CHRONIC GRAFT VERSUS HOST DISEASE
     Dosage: UNK
     Route: 065
  4. PROGRAF [Suspect]
     Indication: CHRONIC GRAFT VERSUS HOST DISEASE
     Dosage: 2 MG, UNKNOWN/D
     Route: 065
     Dates: start: 20090101

REACTIONS (4)
  - ASPERGILLOSIS [None]
  - CYTOMEGALOVIRUS VIRAEMIA [None]
  - INFLUENZA [None]
  - HERPES ZOSTER [None]
